FAERS Safety Report 17020417 (Version 1)
Quarter: 2019Q4

REPORT INFORMATION
  Report Type: Report from Study
  Country: US (occurrence: US)
  Receive Date: 20191112
  Receipt Date: 20191112
  Transmission Date: 20200122
  Serious: No
  Sender: FDA-Public Use
  Company Number: US-IPSEN BIOPHARMACEUTICALS, INC.-2019-20987

PATIENT

DRUGS (1)
  1. INCRELEX [Suspect]
     Active Substance: MECASERMIN
     Indication: PRIMARY INSULIN LIKE GROWTH FACTOR-1 DEFICIENCY
     Dosage: DOSE NOT REPORTED
     Route: 065

REACTIONS (1)
  - Blood glucose abnormal [Unknown]
